FAERS Safety Report 7418288-1 (Version None)
Quarter: 2011Q2

REPORT INFORMATION
  Report Type: 
  Country: None (occurrence: None)
  Receive Date: 20110415
  Receipt Date: 20110405
  Transmission Date: 20111010
  Serious: Yes (Hospitalization, Other)
  Sender: FDA-Public Use
  Company Number: US-BAXTER-2011BH008549

PATIENT
  Age: 37 Year
  Sex: Female

DRUGS (1)
  1. DIANEAL [Suspect]
     Indication: PERITONEAL DIALYSIS
     Route: 033

REACTIONS (5)
  - PYREXIA [None]
  - HYPERGLYCAEMIA [None]
  - PERITONITIS [None]
  - INTESTINAL OBSTRUCTION [None]
  - PERITONEAL DIALYSIS COMPLICATION [None]
